FAERS Safety Report 17163501 (Version 1)
Quarter: 2019Q4

REPORT INFORMATION
  Report Type: Report from Study
  Country: US (occurrence: US)
  Receive Date: 20191217
  Receipt Date: 20191217
  Transmission Date: 20200122
  Serious: Yes (Hospitalization)
  Sender: FDA-Public Use
  Company Number: US-TAIHO ONCOLOGY  INC-EU-2019-04153

PATIENT
  Sex: Male
  Weight: 54.93 kg

DRUGS (16)
  1. ANUSOL-HC [Concomitant]
     Dosage: NI
  2. CAPECITABINE. [Concomitant]
     Active Substance: CAPECITABINE
     Dosage: NI
  3. DIPHENOXYLATE-ATROPINE [Concomitant]
     Active Substance: ATROPINE\DIPHENOXYLATE
     Dosage: NI
  4. LONSURF [Suspect]
     Active Substance: TIPIRACIL HYDROCHLORIDE\TRIFLURIDINE
     Indication: RECTOSIGMOID CANCER
     Dosage: CYCLE 2?20MG X 2 AND 15 MG X 1 TABLETS
     Route: 048
     Dates: start: 20191022
  5. OLOPATADINE. [Concomitant]
     Active Substance: OLOPATADINE
     Dosage: NI
  6. CLONAZEPAM. [Concomitant]
     Active Substance: CLONAZEPAM
     Dosage: NI
  7. SUCRALFATE. [Concomitant]
     Active Substance: SUCRALFATE
     Dosage: NI
  8. SERTRALINE [Concomitant]
     Active Substance: SERTRALINE HYDROCHLORIDE
     Dosage: NI
  9. ONDANSETRON [Concomitant]
     Active Substance: ONDANSETRON
     Dosage: NI
  10. SPIRONOLACTONE. [Concomitant]
     Active Substance: SPIRONOLACTONE
     Dosage: NI
  11. FUROSEMIDE. [Concomitant]
     Active Substance: FUROSEMIDE
     Dosage: NI
  12. AMLODIPINE [Concomitant]
     Active Substance: AMLODIPINE BESYLATE
     Dosage: NI
  13. TEMAZEPAM. [Concomitant]
     Active Substance: TEMAZEPAM
     Dosage: NI
  14. SENOKOT [Concomitant]
     Active Substance: SENNOSIDES
     Dosage: NI
  15. HYDROXYZINE [Concomitant]
     Active Substance: HYDROXYZINE HYDROCHLORIDE
     Dosage: NI
  16. DICLOFENAC [Concomitant]
     Active Substance: DICLOFENAC
     Dosage: NI

REACTIONS (3)
  - Anaemia [Unknown]
  - Globulins decreased [Unknown]
  - Gastric ulcer [Unknown]

NARRATIVE: CASE EVENT DATE: 2019
